FAERS Safety Report 20376901 (Version 2)
Quarter: 2022Q2

REPORT INFORMATION
  Report Type: Spontaneous
  Country: US (occurrence: US)
  Receive Date: 20220125
  Receipt Date: 20220429
  Transmission Date: 20220721
  Serious: No
  Sender: FDA-Public Use
  Company Number: US-PFIZER INC-202200081536

PATIENT
  Age: 62 Year
  Sex: Female
  Weight: 83.91 kg

DRUGS (3)
  1. CHANTIX [Suspect]
     Active Substance: VARENICLINE TARTRATE
     Indication: Smoking cessation therapy
     Dosage: 0.5 DF, 1X/DAY, FOR THREE DAYS
     Dates: start: 2021, end: 2021
  2. CHANTIX [Suspect]
     Active Substance: VARENICLINE TARTRATE
     Dosage: 0.5 DF, 2X/DAY
     Dates: start: 2021, end: 2021
  3. CHANTIX [Suspect]
     Active Substance: VARENICLINE TARTRATE
     Dosage: 1 MG, 2X/DAY
     Dates: start: 2021, end: 2021

REACTIONS (4)
  - Product storage error [Unknown]
  - Product administration error [Unknown]
  - Feeling abnormal [Recovered/Resolved]
  - Product prescribing error [Unknown]
